FAERS Safety Report 24255608 (Version 5)
Quarter: 2025Q2

REPORT INFORMATION
  Report Type: Spontaneous
  Country: US (occurrence: US)
  Receive Date: 20240827
  Receipt Date: 20250416
  Transmission Date: 20250716
  Serious: No
  Sender: SANOFI AVENTIS
  Company Number: US-SA-SAC20240821001417

PATIENT
  Age: 66 Year
  Sex: Female

DRUGS (1)
  1. DUPIXENT [Suspect]
     Active Substance: DUPILUMAB
     Indication: Dermatitis atopic
     Dosage: 300 MG, QOW
     Route: 058
     Dates: start: 202405

REACTIONS (12)
  - Fatigue [Unknown]
  - Dry skin [Unknown]
  - Eczema eyelids [Unknown]
  - Pain [Unknown]
  - Oropharyngeal pain [Unknown]
  - Nasal dryness [Unknown]
  - Eyelid margin crusting [Unknown]
  - Pruritus [Not Recovered/Not Resolved]
  - Sinusitis [Unknown]
  - Myalgia [Unknown]
  - Pain in extremity [Unknown]
  - Dry eye [Unknown]

NARRATIVE: CASE EVENT DATE: 20240101
